FAERS Safety Report 19742831 (Version 2)
Quarter: 2021Q4

REPORT INFORMATION
  Report Type: Report from Study
  Country: US (occurrence: US)
  Receive Date: 20210825
  Receipt Date: 20211021
  Transmission Date: 20220303
  Serious: No
  Sender: FDA-Public Use
  Company Number: NVSC2021US120663

PATIENT
  Sex: Female

DRUGS (1)
  1. ENTRESTO [Suspect]
     Active Substance: SACUBITRIL\VALSARTAN
     Indication: Product used for unknown indication
     Dosage: UNK UNK, BID
     Route: 048
     Dates: start: 20210409

REACTIONS (7)
  - Pain in extremity [Unknown]
  - Fear [Unknown]
  - Dysphonia [Unknown]
  - Weight increased [Unknown]
  - Asthenia [Unknown]
  - Fatigue [Unknown]
  - Product administration error [Unknown]
